FAERS Safety Report 5333147-6 (Version None)
Quarter: 2007Q2

REPORT INFORMATION
  Report Type: 
  Country: None (occurrence: None)
  Receive Date: 20070521
  Receipt Date: 20070508
  Transmission Date: 20071010
  Serious: Yes (Hospitalization)
  Sender: FDA-Public Use
  Company Number: 236978K06USA

PATIENT
  Age: 40 Year
  Sex: Male
  Weight: 79.8331 kg

DRUGS (7)
  1. REBIF [Suspect]
     Indication: MULTIPLE SCLEROSIS
     Dosage: 44 MCG, 3 IN 1 WEEKS, SUBCUTANEOUS
     Route: 058
     Dates: start: 20060220
  2. TYLENOL (COTYLENOL) [Concomitant]
  3. ADVIL [Concomitant]
  4. ALTACE (RAMIPRIL  /00885601/) [Concomitant]
  5. TEGRETOL [Concomitant]
  6. ZOLOFT [Concomitant]
  7. ASPIRIN [Concomitant]

REACTIONS (1)
  - MYOCARDIAL INFARCTION [None]
